FAERS Safety Report 24201128 (Version 5)
Quarter: 2025Q1

REPORT INFORMATION
  Report Type: Other
  Country: US (occurrence: US)
  Receive Date: 20240812
  Receipt Date: 20250127
  Transmission Date: 20250408
  Serious: Yes (Hospitalization)
  Sender: TRAVERE THERAPEUTICS
  Company Number: US-TRAVERE-2024TVT00688

PATIENT
  Age: 73 Year
  Sex: Male

DRUGS (18)
  1. FILSPARI [Suspect]
     Active Substance: SPARSENTAN
     Indication: IgA nephropathy
     Route: 048
     Dates: start: 20240301
  2. FILSPARI [Suspect]
     Active Substance: SPARSENTAN
     Route: 048
     Dates: start: 202406
  3. FILSPARI [Suspect]
     Active Substance: SPARSENTAN
     Route: 048
  4. FILSPARI [Suspect]
     Active Substance: SPARSENTAN
     Route: 048
     Dates: end: 202411
  5. ALLOPURINOL [Concomitant]
     Active Substance: ALLOPURINOL
  6. MINOXIDIL [Concomitant]
     Active Substance: MINOXIDIL
  7. TRAMADOL [Concomitant]
     Active Substance: TRAMADOL
  8. FAMOTIDINE [Concomitant]
     Active Substance: FAMOTIDINE
  9. ATENOLOL [Concomitant]
     Active Substance: ATENOLOL
  10. MIRTAZAPINE [Concomitant]
     Active Substance: MIRTAZAPINE
  11. PREDNISONE [Concomitant]
     Active Substance: PREDNISONE
  12. ATORVASTATIN [Concomitant]
     Active Substance: ATORVASTATIN
  13. ACITRETIN [Concomitant]
     Active Substance: ACITRETIN
  14. ASPIRIN [Concomitant]
     Active Substance: ASPIRIN
  15. CYCLOSPORINE [Concomitant]
     Active Substance: CYCLOSPORINE
  16. NIACINAMIDE [Concomitant]
     Active Substance: NIACINAMIDE
  17. FISH OIL [Concomitant]
     Active Substance: FISH OIL
  18. SERTRALINE [Concomitant]
     Active Substance: SERTRALINE HYDROCHLORIDE

REACTIONS (3)
  - Influenza [Recovering/Resolving]
  - Blood potassium increased [Unknown]
  - Wrong technique in product usage process [Unknown]
